FAERS Safety Report 4966582-6 (Version None)
Quarter: 2006Q2

REPORT INFORMATION
  Report Type: 
  Country: None (occurrence: None)
  Receive Date: 20060407
  Receipt Date: 20060320
  Transmission Date: 20061013
  Serious: Yes (Other)
  Sender: FDA-Public Use
  Company Number: IT-AVENTIS-200612750GDDC

PATIENT
  Age: 32 Year
  Sex: Female

DRUGS (1)
  1. KETEK [Suspect]
     Indication: BRONCHITIS
     Route: 048
     Dates: start: 20060215, end: 20060217

REACTIONS (3)
  - ACCOMMODATION DISORDER [None]
  - ASTHENIA [None]
  - SHOCK [None]
